FAERS Safety Report 8295185-3 (Version None)
Quarter: 2012Q2

REPORT INFORMATION
  Report Type: 
  Country: None (occurrence: None)
  Receive Date: 20120416
  Receipt Date: 20120402
  Transmission Date: 20120825
  Serious: Yes (Other)
  Sender: FDA-Public Use
  Company Number: US-2012-10381

PATIENT
  Age: 34 Year
  Sex: Female

DRUGS (1)
  1. SAMSCA [Suspect]
     Indication: HYPONATRAEMIA

REACTIONS (10)
  - OSMOTIC DEMYELINATION SYNDROME [None]
  - CEREBELLAR SYNDROME [None]
  - DYSARTHRIA [None]
  - APHASIA [None]
  - NEOLOGISM [None]
  - POSTURE ABNORMAL [None]
  - DIZZINESS [None]
  - RAPID CORRECTION OF HYPONATRAEMIA [None]
  - ATAXIA [None]
  - DYSPHEMIA [None]
